FAERS Safety Report 6477610-3 (Version None)
Quarter: 2009Q4

REPORT INFORMATION
  Report Type: 
  Country: None (occurrence: None)
  Receive Date: 20091203
  Receipt Date: 20091203
  Transmission Date: 20100525
  Serious: Yes (Hospitalization)
  Sender: FDA-Public Use
  Company Number: None

PATIENT
  Age: 75 Year
  Sex: Female
  Weight: 60.4 kg

DRUGS (4)
  1. ERLOTINIB 150 MG GENETECH [Suspect]
     Indication: GASTRIC CANCER
     Dosage: 150 MG EVERY DAY PO
     Route: 048
     Dates: start: 20090821, end: 20091016
  2. HYDROCLORATHIAZIDE [Concomitant]
  3. SYNTHROID [Concomitant]
  4. BABY ASPIRIN [Concomitant]

REACTIONS (4)
  - ANURIA [None]
  - BACK PAIN [None]
  - FALL [None]
  - SPINAL FRACTURE [None]
